FAERS Safety Report 8833954 (Version 1)
Quarter: 2012Q4

REPORT INFORMATION
  Report Type: Spontaneous
  Country: US (occurrence: None)
  Receive Date: 20121010
  Receipt Date: 20121010
  Transmission Date: 20130627
  Serious: Yes (Other)
  Sender: FDA-Public Use
  Company Number: None

PATIENT
  Age: 36 Year
  Sex: Female
  Weight: 48.54 kg

DRUGS (1)
  1. ESCITALOPRAM [Suspect]
     Indication: ANXIETY
     Dosage: 5-10 depends on time month.
     Route: 048

REACTIONS (12)
  - Anxiety [None]
  - Depressed mood [None]
  - Lethargy [None]
  - Irritability [None]
  - Fatigue [None]
  - Premenstrual syndrome [None]
  - Feeling abnormal [None]
  - Headache [None]
  - Feeling abnormal [None]
  - Product substitution issue [None]
  - Disease recurrence [None]
  - Drug ineffective [None]
